FAERS Safety Report 23515691 (Version 1)
Quarter: 2024Q1

REPORT INFORMATION
  Report Type: Spontaneous
  Country: NL (occurrence: NL)
  Receive Date: 20240213
  Receipt Date: 20240213
  Transmission Date: 20240410
  Serious: Yes (Other)
  Sender: FDA-Public Use
  Company Number: None

PATIENT
  Age: 15 Year
  Sex: Female
  Weight: 61 kg

DRUGS (6)
  1. BETAMETHASONE [Suspect]
     Active Substance: BETAMETHASONE\BETAMETHASONE DIPROPIONATE
     Indication: Eczema
  2. CLOBETASOL PROPIONATE [Suspect]
     Active Substance: CLOBETASOL PROPIONATE
     Indication: Eczema
  3. HYDROCORTISONE ACETATE [Suspect]
     Active Substance: HYDROCORTISONE ACETATE
     Indication: Eczema
     Dosage: MEERDERE KEREN PER DAG
     Dates: start: 20120101, end: 20210901
  4. ELIDEL [Suspect]
     Active Substance: PIMECROLIMUS
     Indication: Eczema
  5. PROTOPIC [Suspect]
     Active Substance: TACROLIMUS
     Indication: Eczema
  6. CUTIVATE [Suspect]
     Active Substance: FLUTICASONE PROPIONATE
     Indication: Eczema

REACTIONS (5)
  - Erythema [Recovering/Resolving]
  - Steroid dependence [Recovering/Resolving]
  - Eczema [Recovering/Resolving]
  - Topical steroid withdrawal reaction [Recovering/Resolving]
  - Skin discharge [Recovering/Resolving]
